FAERS Safety Report 6273146-3 (Version None)
Quarter: 2009Q3

REPORT INFORMATION
  Report Type: 
  Country: None (occurrence: None)
  Receive Date: 20090709
  Receipt Date: 20090701
  Transmission Date: 20100115
  Serious: Yes (Other)
  Sender: FDA-Public Use
  Company Number: WSDF_00794

PATIENT
  Sex: Female
  Weight: 50 kg

DRUGS (2)
  1. WINRHO SDF [Suspect]
     Indication: IDIOPATHIC THROMBOCYTOPENIC PURPURA
     Dosage: 60 ?G/KG QD INTRAVENOUS (NOT OTHERWISE SPECIFIED)
     Route: 042
     Dates: start: 20081217, end: 20081217
  2. ORAL CONTRACEPTIVE NOS () [Concomitant]

REACTIONS (1)
  - RAYNAUD'S PHENOMENON [None]
